FAERS Safety Report 22985256 (Version 3)
Quarter: 2023Q4

REPORT INFORMATION
  Report Type: Report from Study
  Country: US (occurrence: US)
  Receive Date: 20230926
  Receipt Date: 20231222
  Transmission Date: 20240109
  Serious: No
  Sender: FDA-Public Use
  Company Number: US-002147023-NVSC2023US207815

PATIENT
  Age: 4 Year
  Sex: Female

DRUGS (4)
  1. ILARIS [Suspect]
     Active Substance: CANAKINUMAB
     Indication: Juvenile idiopathic arthritis
     Dosage: 55.5 MG
     Route: 058
     Dates: start: 20230310
  2. ILARIS [Suspect]
     Active Substance: CANAKINUMAB
     Dosage: 61.5 MG
     Route: 058
     Dates: start: 20230921
  3. ILARIS [Suspect]
     Active Substance: CANAKINUMAB
     Dosage: 63 MG, Q4W
     Route: 058
     Dates: start: 20231102
  4. ILARIS [Suspect]
     Active Substance: CANAKINUMAB
     Dosage: 61.5 MG
     Route: 058
     Dates: start: 20231215

REACTIONS (1)
  - Incorrect dose administered [Unknown]

NARRATIVE: CASE EVENT DATE: 20230921
